FAERS Safety Report 20298333 (Version 2)
Quarter: 2022Q1

REPORT INFORMATION
  Report Type: Spontaneous
  Country: CN (occurrence: CN)
  Receive Date: 20220105
  Receipt Date: 20220131
  Transmission Date: 20220423
  Serious: Yes (Other)
  Sender: FDA-Public Use
  Company Number: CN-Accord-248961

PATIENT
  Age: 46 Year
  Sex: Female

DRUGS (2)
  1. CISPLATIN [Suspect]
     Active Substance: CISPLATIN
     Indication: Ovarian granulosa cell tumour
     Dosage: 6 CYCLES
     Dates: start: 201805
  2. PACLITAXEL [Suspect]
     Active Substance: PACLITAXEL
     Indication: Ovarian granulosa cell tumour
     Dosage: 6 CYCLES
     Dates: start: 201805

REACTIONS (2)
  - Tubulointerstitial nephritis [Unknown]
  - Treatment failure [Unknown]
